FAERS Safety Report 16796142 (Version 2)
Quarter: 2020Q1

REPORT INFORMATION
  Report Type: Report from Study
  Country: CA (occurrence: CA)
  Receive Date: 20190911
  Receipt Date: 20200121
  Transmission Date: 20200409
  Serious: Yes (Other)
  Sender: FDA-Public Use
  Company Number: CA-TEVA-2019-CA-1106657

PATIENT
  Age: 76 Year
  Sex: Female

DRUGS (16)
  1. APO MOMETASONE [Concomitant]
     Active Substance: MOMETASONE
     Indication: MIGRAINE
     Route: 065
  2. APO PANTOPRAZOLE [Concomitant]
     Indication: MIGRAINE
     Route: 065
  3. ERYTHRO [Concomitant]
     Active Substance: ERYTHROMYCIN
     Indication: MIGRAINE
     Route: 065
  4. CANDESARTAN CILEXETIL. [Suspect]
     Active Substance: CANDESARTAN CILEXETIL
     Indication: MIGRAINE
     Route: 065
  5. NOVO-FAMOTIDINE [Concomitant]
     Indication: MIGRAINE
     Route: 065
  6. RIZATRIPTAN BENZOATE. [Suspect]
     Active Substance: RIZATRIPTAN BENZOATE
     Indication: MIGRAINE
     Route: 065
  7. GABAPENTIN. [Concomitant]
     Active Substance: GABAPENTIN
     Indication: MIGRAINE
     Route: 065
  8. MEMANTINE. [Suspect]
     Active Substance: MEMANTINE
     Indication: MIGRAINE
     Route: 065
  9. APO AZITHROMYCIN [Concomitant]
     Active Substance: AZITHROMYCIN
     Indication: MIGRAINE
     Route: 065
  10. ALMOTRIPTAN. [Suspect]
     Active Substance: ALMOTRIPTAN
     Indication: MIGRAINE
     Route: 065
  11. CYPROHEPTADINE. [Suspect]
     Active Substance: CYPROHEPTADINE
     Indication: MIGRAINE
     Route: 065
  12. BOTULINUM TOXIN TYPE A [Suspect]
     Active Substance: BOTULINUM TOXIN TYPE A
     Indication: MIGRAINE
     Route: 065
  13. BOTOX [Suspect]
     Active Substance: ONABOTULINUMTOXINA
     Indication: MIGRAINE
     Route: 065
  14. PURG ODAN [Suspect]
     Active Substance: ANHYDROUS CITRIC ACID\MAGNESIUM OXIDE\SODIUM PICOSULFATE
     Indication: MIGRAINE
     Route: 065
  15. DEPO-MEDROL [Concomitant]
     Active Substance: METHYLPREDNISOLONE ACETATE
     Indication: MIGRAINE
     Route: 065
  16. LORAZEPAM. [Concomitant]
     Active Substance: LORAZEPAM
     Indication: MIGRAINE
     Route: 065

REACTIONS (6)
  - Periorbital oedema [Recovered/Resolved]
  - Drug ineffective for unapproved indication [Recovered/Resolved]
  - Muscle spasms [Recovered/Resolved]
  - Drug intolerance [Recovered/Resolved]
  - Periorbital swelling [Recovered/Resolved]
  - Anaphylactic reaction [Recovered/Resolved]
